FAERS Safety Report 24958920 (Version 1)
Quarter: 2025Q1

REPORT INFORMATION
  Report Type: Other
  Country: IT (occurrence: IT)
  Receive Date: 20250212
  Receipt Date: 20250212
  Transmission Date: 20250409
  Serious: Yes (Death, Other)
  Sender: ESJAY PHARMA
  Company Number: IT-ESJAY PHARMA-000287

PATIENT
  Age: 48 Year
  Sex: Male

DRUGS (4)
  1. ATENOLOL [Suspect]
     Active Substance: ATENOLOL
     Indication: Mental disability
  2. CLOZAPINE [Concomitant]
     Active Substance: CLOZAPINE
     Indication: Mental disability
  3. DELORAZEPAM [Concomitant]
     Active Substance: DELORAZEPAM
     Indication: Mental disability
  4. OXCARBAZEPINE [Concomitant]
     Active Substance: OXCARBAZEPINE
     Indication: Mental disability

REACTIONS (3)
  - Dysphagia [Fatal]
  - Pulmonary oedema [Unknown]
  - Pulmonary interstitial emphysema syndrome [Unknown]
